FAERS Safety Report 5787128-9 (Version None)
Quarter: 2008Q2

REPORT INFORMATION
  Report Type: 
  Country: None (occurrence: None)
  Receive Date: 20080625
  Receipt Date: 20080623
  Transmission Date: 20081010
  Serious: Yes (Other)
  Sender: FDA-Public Use
  Company Number: DE-BRISTOL-MYERS SQUIBB COMPANY-14236939

PATIENT
  Sex: Male

DRUGS (1)
  1. IRBESARTAN [Suspect]

REACTIONS (1)
  - VASCULITIS [None]
